FAERS Safety Report 9027952 (Version 1)
Quarter: 2013Q1

REPORT INFORMATION
  Report Type: Spontaneous
  Country: US (occurrence: None)
  Receive Date: 20130114
  Receipt Date: 20130114
  Transmission Date: 20140127
  Serious: No
  Sender: FDA-Public Use
  Company Number: None

PATIENT
  Sex: Male
  Weight: 111.13 kg

DRUGS (1)
  1. RANEXA [Suspect]
     Dosage: 500 MG TWICE DAILY PO
     Route: 048
     Dates: start: 20120814, end: 20130103

REACTIONS (1)
  - Local swelling [None]
